FAERS Safety Report 22879094 (Version 4)
Quarter: 2023Q4

REPORT INFORMATION
  Report Type: Spontaneous
  Country: CZ (occurrence: CZ)
  Receive Date: 20230829
  Receipt Date: 20231017
  Transmission Date: 20240109
  Serious: Yes (Hospitalization, Other)
  Sender: FDA-Public Use
  Company Number: CZ-MYLANLABS-2023M1090444

PATIENT
  Age: 56 Year
  Sex: Male

DRUGS (26)
  1. BEVACIZUMAB [Suspect]
     Active Substance: BEVACIZUMAB
     Indication: Rectosigmoid cancer metastatic
     Dosage: 5 MILLIGRAM/KILOGRAM  ON DAY 1
     Route: 065
     Dates: start: 202004
  2. BEVACIZUMAB [Suspect]
     Active Substance: BEVACIZUMAB
     Indication: Metastases to lung
  3. BEVACIZUMAB [Suspect]
     Active Substance: BEVACIZUMAB
     Indication: Adenocarcinoma of colon
  4. OXALIPLATIN [Suspect]
     Active Substance: OXALIPLATIN
     Indication: Rectosigmoid cancer metastatic
     Dosage: 85 MILLIGRAM/SQ. METER ON DAY 1
     Route: 065
     Dates: start: 202004, end: 202010
  5. OXALIPLATIN [Suspect]
     Active Substance: OXALIPLATIN
     Indication: Adenocarcinoma of colon
     Dosage: 85 MILLIGRAM/SQ. METER ON DAY 1
     Route: 065
     Dates: start: 202204
  6. OXALIPLATIN [Suspect]
     Active Substance: OXALIPLATIN
     Indication: Metastases to lung
  7. OXALIPLATIN [Suspect]
     Active Substance: OXALIPLATIN
     Indication: Adenocarcinoma of colon
     Dosage: 85MG/SQ.METER,QD,(DAILY; PART OF MFOLFOX6 REGIMEN)
     Route: 042
     Dates: start: 202004
  8. FLUOROURACIL [Suspect]
     Active Substance: FLUOROURACIL
     Indication: Rectosigmoid cancer metastatic
     Dosage: 2400 MG/SQ. METER, Q2W IV FOR 46 HRS
     Route: 042
     Dates: start: 202010
  9. FLUOROURACIL [Suspect]
     Active Substance: FLUOROURACIL
     Indication: Metastases to lung
     Dosage: 400 MILLIGRAM/SQ. METER ON DAY 1
     Route: 042
     Dates: start: 202204
  10. FLUOROURACIL [Suspect]
     Active Substance: FLUOROURACIL
     Indication: Adenocarcinoma of colon
  11. LEUCOVORIN CALCIUM [Suspect]
     Active Substance: LEUCOVORIN CALCIUM
     Indication: Rectosigmoid cancer metastatic
     Dosage: 400 MILLIGRAM/SQ. METER ON DAY 1
     Route: 065
     Dates: start: 202010
  12. LEUCOVORIN CALCIUM [Suspect]
     Active Substance: LEUCOVORIN CALCIUM
     Indication: Metastases to lung
     Dosage: 400 MILLIGRAM/SQ. METER ON DAY 1
     Route: 065
     Dates: start: 202204
  13. LEUCOVORIN CALCIUM [Suspect]
     Active Substance: LEUCOVORIN CALCIUM
     Indication: Adenocarcinoma of colon
  14. LEUCOVORIN CALCIUM [Suspect]
     Active Substance: LEUCOVORIN CALCIUM
     Indication: Adenocarcinoma of colon
     Dosage: 400MG/SQ.METER,QD,(DAILY;PART OF MFOLFOX6 REGIMEN)
     Route: 042
     Dates: start: 202004
  15. LEUCOVORIN CALCIUM [Suspect]
     Active Substance: LEUCOVORIN CALCIUM
     Indication: Rectosigmoid cancer metastatic
  16. FILGRASTIM [Suspect]
     Active Substance: FILGRASTIM
     Indication: Product used for unknown indication
     Dosage: UNK
     Route: 065
  17. AFLIBERCEPT [Concomitant]
     Active Substance: AFLIBERCEPT
     Indication: Rectosigmoid cancer metastatic
     Dosage: 4 MILLIGRAM PER KILOGRAM, ON DAY 1
     Route: 065
     Dates: start: 202010
  18. AFLIBERCEPT [Concomitant]
     Active Substance: AFLIBERCEPT
     Indication: Adenocarcinoma of colon
  19. IRINOTECAN [Concomitant]
     Active Substance: IRINOTECAN
     Indication: Rectosigmoid cancer metastatic
     Dosage: 180 MILLIGRAM/SQ. METER, ON DAY 1
     Route: 065
     Dates: start: 202010
  20. IRINOTECAN [Concomitant]
     Active Substance: IRINOTECAN
     Indication: Adenocarcinoma of colon
  21. OXALIPLATIN [Concomitant]
     Active Substance: OXALIPLATIN
     Indication: Adenocarcinoma of colon
     Dosage: 85 MILLIGRAM PER SQUARE METRE, ON DAY 1
     Route: 065
     Dates: start: 202004
  22. TIPIRACIL HYDROCHLORIDE\TRIFLURIDINE [Concomitant]
     Active Substance: TIPIRACIL HYDROCHLORIDE\TRIFLURIDINE
     Indication: Adenocarcinoma of colon
     Dosage: 60 MILLIGRAM, BID
     Route: 065
  23. TIPIRACIL HYDROCHLORIDE\TRIFLURIDINE [Concomitant]
     Active Substance: TIPIRACIL HYDROCHLORIDE\TRIFLURIDINE
     Dosage: 70 MG, BID (ON D1-5 AND D8-12 EVERY FOUR WEEKS)
     Route: 065
     Dates: start: 202112
  24. LEUCOVORIN CALCIUM [Concomitant]
     Active Substance: LEUCOVORIN CALCIUM
     Indication: Adenocarcinoma of colon
     Dosage: 400 MILLIGRAM PER SQUARE METRE, ON DAY 1
     Route: 065
     Dates: start: 202004
  25. FLUOROURACIL [Concomitant]
     Active Substance: FLUOROURACIL
     Indication: Rectosigmoid cancer metastatic
     Dosage: 400 MILLIGRAM PER SQUARE METRE, ON DAY 1
     Route: 042
     Dates: start: 202004
  26. FLUOROURACIL [Concomitant]
     Active Substance: FLUOROURACIL
     Indication: Adenocarcinoma of colon
     Dosage: 2400 MG/M2,Q2W(CONTINUOUS 46HR IV ADMINISTRATION)
     Route: 042

REACTIONS (13)
  - Neuropathy peripheral [Recovered/Resolved]
  - Disease progression [Unknown]
  - Obstructive pancreatitis [Recovered/Resolved]
  - Neutropenia [Recovering/Resolving]
  - Adenocarcinoma of colon [Recovered/Resolved]
  - Thrombocytopenia [Recovered/Resolved]
  - Therapeutic product effect incomplete [Unknown]
  - Rectal tenesmus [Recovered/Resolved]
  - Diarrhoea [Recovered/Resolved]
  - Nausea [Recovered/Resolved]
  - Ill-defined disorder [Recovered/Resolved]
  - Infection [Recovered/Resolved]
  - Anaemia [Recovered/Resolved]

NARRATIVE: CASE EVENT DATE: 20200101
